FAERS Safety Report 4570668-8 (Version None)
Quarter: 2005Q1

REPORT INFORMATION
  Report Type: 
  Country: None (occurrence: None)
  Receive Date: 20050131
  Receipt Date: 20050118
  Transmission Date: 20050727
  Serious: Yes (Death, Hospitalization, Other)
  Sender: FDA-Public Use
  Company Number: 2005010453

PATIENT
  Age: 72 Year
  Sex: Male

DRUGS (20)
  1. LIPITOR [Suspect]
     Indication: HYPERLIPIDAEMIA
     Dosage: 10 MG, 1 IN 1 D
     Dates: start: 20000701, end: 20030101
  2. CELEBREX [Suspect]
     Indication: BACK PAIN
     Dosage: 200 MG, 1 IN 1 D
     Dates: start: 20021101, end: 20030201
  3. FENOFIBRATE [Suspect]
     Indication: HYPERLIPIDAEMIA
     Dosage: 160 MG, 1 IN 1 D
     Dates: start: 20021001, end: 20030101
  4. NABUMETONE [Suspect]
     Indication: BACK PAIN
     Dosage: 750 G, 1 IN 2 D
     Dates: start: 19960901, end: 20030101
  5. PAROXETINE HCL [Suspect]
     Indication: ILL-DEFINED DISORDER
     Dosage: 12.5 MG, 1 IN 1 D
     Dates: start: 20030110, end: 20030114
  6. METOCLOPRAMIDE [Suspect]
     Indication: ILL-DEFINED DISORDER
     Dosage: 10 MG, 1 IN 3 D
     Dates: start: 20030204
  7. ALL OTHER THERAPEUTIC PRODUCTS [Suspect]
     Indication: ILL-DEFINED DISORDER
  8. VALSARTAN (VALSARTAN) [Concomitant]
  9. FUROSEMIDE [Concomitant]
  10. METOPROLOL TARTRATE [Concomitant]
  11. FELODIPINE [Concomitant]
  12. HYZAAR [Concomitant]
  13. ANUSOL-HC (BENZYL BENZOATE, BISMUTH HYDROXIDE, BISMUTH SUBGALLATE, HYD [Concomitant]
  14. ORPHENADRINE CITRATE [Concomitant]
  15. LORAZEPAM [Concomitant]
  16. PROCHLORPERAZINE EDISYLATE [Concomitant]
  17. LANSOPRAZOLE [Concomitant]
  18. HYDROCHLOROTHIAZIDE [Concomitant]
  19. ULTRACET [Concomitant]
  20. METAXALONE [Concomitant]

REACTIONS (77)
  - ACTIVATED PARTIAL THROMBOPLASTIN TIME PROLONGED [None]
  - ADVERSE DRUG REACTION [None]
  - AGITATION [None]
  - ANAEMIA [None]
  - ANOREXIA [None]
  - AORTIC CALCIFICATION [None]
  - ARRHYTHMIA SUPRAVENTRICULAR [None]
  - ARTHRALGIA [None]
  - ASTHENIA [None]
  - BACK PAIN [None]
  - BLOOD ALBUMIN DECREASED [None]
  - BLOOD CALCIUM DECREASED [None]
  - BLOOD GLUCOSE INCREASED [None]
  - BLOOD SODIUM DECREASED [None]
  - BLOOD URINE PRESENT [None]
  - CANDIDA SEPSIS [None]
  - CARDIAC FAILURE CONGESTIVE [None]
  - CARDIAC TAMPONADE [None]
  - CARDIOMEGALY [None]
  - CARPAL TUNNEL SYNDROME [None]
  - CHOREOATHETOSIS [None]
  - CHRONIC OBSTRUCTIVE PULMONARY DISEASE [None]
  - COMA [None]
  - CONFUSIONAL STATE [None]
  - CONSTIPATION [None]
  - CSF PROTEIN INCREASED [None]
  - DEHYDRATION [None]
  - DIASTOLIC DYSFUNCTION [None]
  - DYSARTHRIA [None]
  - DYSPEPSIA [None]
  - DYSURIA [None]
  - ENCEPHALOPATHY [None]
  - FLUID OVERLOAD [None]
  - GASTROINTESTINAL HAEMORRHAGE [None]
  - GRAVITATIONAL OEDEMA [None]
  - HAEMODIALYSIS [None]
  - HAEMODYNAMIC INSTABILITY [None]
  - HAEMOLYSIS [None]
  - HEADACHE [None]
  - HEPARIN-INDUCED THROMBOCYTOPENIA [None]
  - HYPOXIA [None]
  - ILEUS [None]
  - INTERSTITIAL LUNG DISEASE [None]
  - JOINT SWELLING [None]
  - LOGORRHOEA [None]
  - LYMPHOCYTE COUNT DECREASED [None]
  - MENTAL STATUS CHANGES [None]
  - METABOLIC ACIDOSIS [None]
  - MICTURITION URGENCY [None]
  - MITRAL VALVE CALCIFICATION [None]
  - MITRAL VALVE INCOMPETENCE [None]
  - MOBILITY DECREASED [None]
  - MULTI-ORGAN FAILURE [None]
  - MUSCLE TWITCHING [None]
  - MYOSITIS [None]
  - NAUSEA [None]
  - PERICARDIAL EFFUSION [None]
  - PERICARDITIS [None]
  - PLATELET COUNT INCREASED [None]
  - PLEURAL EFFUSION [None]
  - PNEUMONIA [None]
  - PNEUMONIA ASPIRATION [None]
  - POLYNEUROPATHY [None]
  - PROCEDURAL HYPOTENSION [None]
  - PROTHROMBIN TIME PROLONGED [None]
  - PULMONARY CONGESTION [None]
  - RENAL FAILURE [None]
  - RENAL FAILURE ACUTE [None]
  - RENAL FAILURE CHRONIC [None]
  - RESPIRATORY FAILURE [None]
  - RETCHING [None]
  - RHABDOMYOLYSIS [None]
  - THROMBOPHLEBITIS [None]
  - VENTRICULAR HYPERTROPHY [None]
  - VOMITING [None]
  - WEIGHT DECREASED [None]
  - WEIGHT INCREASED [None]
